FAERS Safety Report 15725236 (Version 1)
Quarter: 2018Q4

REPORT INFORMATION
  Report Type: Spontaneous
  Country: GB (occurrence: GB)
  Receive Date: 20181215
  Receipt Date: 20181215
  Transmission Date: 20190205
  Serious: Yes (Other)
  Sender: FDA-Public Use
  Company Number: GB-TEVA-2018-GB-986005

PATIENT
  Age: 44 Year
  Sex: Female
  Weight: 63 kg

DRUGS (1)
  1. PROPRANOLOL [Suspect]
     Active Substance: PROPRANOLOL HYDROCHLORIDE
     Indication: HEMIPLEGIC MIGRAINE
     Dosage: 80 MILLIGRAM DAILY;
     Route: 048
     Dates: start: 201809, end: 20181109

REACTIONS (1)
  - Dyskinesia [Recovering/Resolving]
